FAERS Safety Report 12532098 (Version 1)
Quarter: 2016Q3

REPORT INFORMATION
  Report Type: Spontaneous
  Country: JP (occurrence: JP)
  Receive Date: 20160706
  Receipt Date: 20160706
  Transmission Date: 20161109
  Serious: Yes (Other)
  Sender: FDA-Public Use
  Company Number: JP-WATSON-2016-14529

PATIENT
  Age: 64 Year
  Sex: Male
  Weight: 65.5 kg

DRUGS (4)
  1. DEXAMETHASONE. [Concomitant]
     Active Substance: DEXAMETHASONE
     Indication: MENINGITIS MENINGOCOCCAL
     Dosage: 40 MG, UNK
     Route: 065
  2. AMPICILLIN SODIUM (WATSON LABORATORIES) [Suspect]
     Active Substance: AMPICILLIN SODIUM
     Indication: MENINGITIS MENINGOCOCCAL
     Dosage: 12 G, DAILY
     Route: 065
  3. CEFTRIAXONE. [Concomitant]
     Active Substance: CEFTRIAXONE
     Indication: MENINGITIS MENINGOCOCCAL
     Dosage: 4 G, DAILY
     Route: 065
  4. VANCOMYCIN [Concomitant]
     Active Substance: VANCOMYCIN
     Indication: MENINGITIS MENINGOCOCCAL
     Dosage: 2 G, DAILY
     Route: 065

REACTIONS (1)
  - Renal impairment [Recovering/Resolving]
